FAERS Safety Report 17581657 (Version 1)
Quarter: 2020Q1

REPORT INFORMATION
  Report Type: Spontaneous
  Country: US (occurrence: US)
  Receive Date: 20200325
  Receipt Date: 20200325
  Transmission Date: 20200409
  Serious: Yes (Other)
  Sender: FDA-Public Use
  Company Number: US-AMGEN-USASP2020045861

PATIENT
  Sex: Female

DRUGS (20)
  1. LORATADINE. [Concomitant]
     Active Substance: LORATADINE
     Dosage: 10 MILLIGRAM
  2. PROBIOTIC BLEND [Concomitant]
     Dosage: UNK
  3. FASLODEX [Concomitant]
     Active Substance: FULVESTRANT
     Indication: PRODUCT USED FOR UNKNOWN INDICATION
     Dosage: 250 MILLIGRAM
     Route: 065
  4. I-VITE [Concomitant]
     Dosage: 1000-60
  5. MAGNESIUM [Concomitant]
     Active Substance: MAGNESIUM
     Dosage: 300 MILLIGRAM
  6. PREDNISOLONE ACETATE. [Concomitant]
     Active Substance: PREDNISOLONE ACETATE
     Dosage: 1 PERCENT
  7. ADVIL COLD AND SINUS [Concomitant]
     Active Substance: IBUPROFEN\PSEUDOEPHEDRINE HYDROCHLORIDE
     Dosage: 200MG-3
  8. DICLOFENAC SODIUM. [Concomitant]
     Active Substance: DICLOFENAC SODIUM
  9. VITAMIN D3 [Concomitant]
     Active Substance: CHOLECALCIFEROL
     Dosage: UNK
  10. VITAMINE C [Concomitant]
     Active Substance: ASCORBIC ACID
     Dosage: UNK
  11. XGEVA [Suspect]
     Active Substance: DENOSUMAB
     Indication: PRODUCT USED FOR UNKNOWN INDICATION
     Dosage: UNK
     Route: 065
  12. IBRANCE [Suspect]
     Active Substance: PALBOCICLIB
     Indication: BREAST CANCER
     Dosage: 125 MILLIGRAM, QD (FOR 21 DAYS)
     Route: 048
  13. CALCIUM [Concomitant]
     Active Substance: CALCIUM
     Dosage: UNK
  14. MULTIVITAMINS [Concomitant]
     Active Substance: VITAMINS
     Dosage: UNK
  15. PATADAY [Concomitant]
     Active Substance: OLOPATADINE HYDROCHLORIDE
     Dosage: 0.2 PERCENT
  16. VITAMIN B [Concomitant]
     Active Substance: VITAMIN B
     Dosage: UNK
  17. TRAMADOL HCL [Concomitant]
     Active Substance: TRAMADOL HYDROCHLORIDE
     Dosage: 50 MILLIGRAM
  18. ZINC. [Concomitant]
     Active Substance: ZINC
  19. ALEVE [Concomitant]
     Active Substance: NAPROXEN SODIUM
     Dosage: UNK
  20. NEXIUM [Concomitant]
     Active Substance: ESOMEPRAZOLE MAGNESIUM
     Dosage: 20 MILLIGRAM

REACTIONS (6)
  - Constipation [Unknown]
  - Breast cancer metastatic [Unknown]
  - Haemorrhoids [Unknown]
  - Bone pain [Unknown]
  - Hip fracture [Unknown]
  - Rectal fissure [Unknown]

NARRATIVE: CASE EVENT DATE: 202001
